FAERS Safety Report 20090231 (Version 3)
Quarter: 2022Q1

REPORT INFORMATION
  Report Type: Report from Study
  Country: US (occurrence: US)
  Receive Date: 20211119
  Receipt Date: 20220111
  Transmission Date: 20220423
  Serious: Yes (Disabling, Other)
  Sender: FDA-Public Use
  Company Number: US-AMGEN-USASP2021180258

PATIENT
  Age: 73 Year
  Sex: Female

DRUGS (32)
  1. AIMOVIG [Suspect]
     Active Substance: ERENUMAB-AOOE
     Indication: Migraine prophylaxis
     Dosage: 140 MILLIGRAM, QMO
     Route: 065
     Dates: start: 20210510
  2. SUMATRIPTAN [Concomitant]
     Active Substance: SUMATRIPTAN
     Indication: Headache
     Dosage: UNK
     Route: 065
  3. SUMATRIPTAN [Concomitant]
     Active Substance: SUMATRIPTAN
     Dosage: UNK, UNK
     Route: 065
  4. ELIQUIS [Concomitant]
     Active Substance: APIXABAN
     Indication: Coagulopathy
     Dosage: 2.5 MILLIGRAM
     Route: 065
     Dates: start: 2019, end: 2021
  5. ELIQUIS [Concomitant]
     Active Substance: APIXABAN
     Dosage: UNK, UNK
     Route: 065
  6. MEGACE [Concomitant]
     Active Substance: MEGESTROL ACETATE
     Indication: Decreased appetite
     Dosage: 40 MILLIGRAM
     Route: 065
     Dates: start: 20210801, end: 202108
  7. HYDROCODONE [Concomitant]
     Active Substance: HYDROCODONE
     Indication: Product used for unknown indication
     Dosage: UNK
     Route: 065
  8. HYDROCODONE [Concomitant]
     Active Substance: HYDROCODONE
     Route: 065
  9. BOTOX [Concomitant]
     Active Substance: ONABOTULINUMTOXINA
     Indication: Migraine
     Dosage: UNK
     Route: 065
  10. BOTOX [Concomitant]
     Active Substance: ONABOTULINUMTOXINA
     Route: 065
  11. BAYER ASPIRIN [Concomitant]
     Active Substance: ASPIRIN
     Indication: Headache
     Dosage: UNK
     Route: 065
  12. BAYER ASPIRIN [Concomitant]
     Active Substance: ASPIRIN
     Route: 065
  13. CALCIUM\MELATONIN\PYRIDOXINE HYDROCHLORIDE [Concomitant]
     Active Substance: CALCIUM\MELATONIN\PYRIDOXINE HYDROCHLORIDE
     Indication: Product used for unknown indication
     Dosage: 10 MILLIGRAM
     Route: 065
  14. CANNABIS SATIVA FLOWERING TOP [Concomitant]
     Active Substance: CANNABIS SATIVA FLOWERING TOP
     Indication: Product used for unknown indication
     Dosage: 30 MILLIGRAM, BID
     Route: 065
  15. ATORVASTATIN [Concomitant]
     Active Substance: ATORVASTATIN
     Indication: Cerebrovascular accident
     Dosage: 20 MILLIGRAM, QD
     Route: 065
     Dates: start: 201912
  16. ATORVASTATIN [Concomitant]
     Active Substance: ATORVASTATIN
     Route: 065
  17. VITAMIN B12 [Concomitant]
     Active Substance: CYANOCOBALAMIN
     Indication: Vitamin B12 deficiency
     Dosage: 1000 MILLIGRAM
  18. DILTIAZEM [Concomitant]
     Active Substance: DILTIAZEM
     Indication: Atrial fibrillation
     Dosage: 120 MILLIGRAM
     Route: 065
     Dates: start: 201908
  19. DILTIAZEM [Concomitant]
     Active Substance: DILTIAZEM
     Route: 065
  20. DULOXETINE [Concomitant]
     Active Substance: DULOXETINE
     Indication: Depression
     Dosage: 60 MILLIGRAM, QD
     Route: 065
     Dates: start: 201907
  21. DULOXETINE [Concomitant]
     Active Substance: DULOXETINE
     Indication: Neuralgia
  22. DULOXETINE [Concomitant]
     Active Substance: DULOXETINE
     Indication: Back pain
  23. GABAPENTIN [Concomitant]
     Active Substance: GABAPENTIN
     Indication: Restless legs syndrome
     Dosage: 300 MILLIGRAM, UNK
     Route: 065
     Dates: start: 2012
  24. GABAPENTIN [Concomitant]
     Active Substance: GABAPENTIN
     Route: 065
  25. ACETAMINOPHEN\HYDROCODONE [Concomitant]
     Active Substance: ACETAMINOPHEN\HYDROCODONE
     Indication: Pain
     Dosage: 10-325 MG (EVERY 4 HOURS)
     Route: 065
     Dates: start: 202103
  26. NITROFURANTOIN [Concomitant]
     Active Substance: NITROFURANTOIN
     Indication: Urinary tract infection
     Dosage: 100 MILLIGRAM
     Route: 065
     Dates: start: 2019
  27. NITROFURANTOIN [Concomitant]
     Active Substance: NITROFURANTOIN
     Route: 065
  28. POTASSIUM [Concomitant]
     Active Substance: POTASSIUM
     Indication: Product used for unknown indication
     Dosage: 10 MILLIEQUIVALENT, QD
     Route: 065
  29. POTASSIUM [Concomitant]
     Active Substance: POTASSIUM
     Route: 065
  30. FOLIC ACID [Concomitant]
     Active Substance: FOLIC ACID
     Indication: Product used for unknown indication
  31. METOPROLOL SUCCINATE [Concomitant]
     Active Substance: METOPROLOL SUCCINATE
     Indication: Muscle relaxant therapy
     Dosage: 25 MILLIGRAM, QD
     Dates: start: 201907
  32. TOPAMAX [Concomitant]
     Active Substance: TOPIRAMATE
     Indication: Headache
     Dosage: UNK
     Dates: end: 20211031

REACTIONS (8)
  - Haemorrhage subcutaneous [Recovered/Resolved]
  - Failure to thrive [Unknown]
  - Oral mucosal blistering [Unknown]
  - Blister [Recovered/Resolved]
  - Weight decreased [Unknown]
  - Fall [Unknown]
  - Memory impairment [Unknown]
  - Migraine [Unknown]

NARRATIVE: CASE EVENT DATE: 20210101
